FAERS Safety Report 6328618-X (Version None)
Quarter: 2009Q3

REPORT INFORMATION
  Report Type: 
  Country: None (occurrence: None)
  Receive Date: 20090826
  Receipt Date: 20070816
  Transmission Date: 20100115
  Serious: Yes (Disabling, Other)
  Sender: FDA-Public Use
  Company Number: US-ASTRAZENECA-2006UW25421

PATIENT
  Age: 59 Year
  Sex: Female
  Weight: 92.4 kg

DRUGS (10)
  1. SEROQUEL [Suspect]
     Indication: DEPRESSION
     Route: 048
     Dates: start: 19970101, end: 20060101
  2. SEROQUEL [Suspect]
     Indication: SLEEP DISORDER
     Route: 048
     Dates: start: 19970101, end: 20060101
  3. SEROQUEL [Suspect]
     Dosage: 15-500MG
     Route: 048
     Dates: start: 20050126
  4. SEROQUEL [Suspect]
     Dosage: 15-500MG
     Route: 048
     Dates: start: 20050126
  5. RISPERDAL [Concomitant]
  6. GLUCOPHAGE [Concomitant]
     Route: 048
     Dates: start: 20040213
  7. LEVOTHYROXINE SODIUM [Concomitant]
     Route: 048
     Dates: start: 20070627
  8. EFFEXOR [Concomitant]
     Route: 048
     Dates: start: 19981021
  9. METHYLPREDNISOLONE [Concomitant]
     Route: 048
     Dates: start: 20040417
  10. TRAZODONE HCL [Concomitant]
     Dosage: 100 -200MG
     Route: 048
     Dates: start: 19980812

REACTIONS (5)
  - BLINDNESS [None]
  - DIABETES MELLITUS [None]
  - OPTIC NERVE DISORDER [None]
  - TOXIC OPTIC NEUROPATHY [None]
  - TYPE 2 DIABETES MELLITUS [None]
